FAERS Safety Report 8586777 (Version 3)
Quarter: 2013Q1

REPORT INFORMATION
  Report Type: Spontaneous
  Country: US (occurrence: None)
  Receive Date: 20120522
  Receipt Date: 20130315
  Transmission Date: 20140127
  Serious: Yes (Other)
  Sender: FDA-Public Use
  Company Number: ADR-2012-00926

PATIENT
  Sex: Female

DRUGS (2)
  1. BACLOFEN [Suspect]
  2. BACLOFEN [Suspect]

REACTIONS (3)
  - FATIGUE [None]
  - SOMNOLENCE [None]
  - DRUG INEFFECTIVE [None]
